FAERS Safety Report 16098974 (Version 2)
Quarter: 2019Q2

REPORT INFORMATION
  Report Type: Spontaneous
  Country: US (occurrence: US)
  Receive Date: 20190321
  Receipt Date: 20190528
  Transmission Date: 20190711
  Serious: No
  Sender: FDA-Public Use
  Company Number: US-PFIZER INC-2019113272

PATIENT
  Age: 39 Year
  Sex: Male
  Weight: 88 kg

DRUGS (2)
  1. TESTOSTERONE CIPIONATE [Suspect]
     Active Substance: TESTOSTERONE
     Dosage: 10 ML, UNK
     Dates: end: 20190308
  2. TESTOSTERONE CIPIONATE [Suspect]
     Active Substance: TESTOSTERONE
     Indication: BLOOD TESTOSTERONE DECREASED
     Dosage: 0.9 ML, WEEKLY (ONCE PER WEEK )
     Dates: start: 2018

REACTIONS (3)
  - Poor quality product administered [Unknown]
  - Sluggishness [Not Recovered/Not Resolved]
  - Product deposit [Unknown]
